FAERS Safety Report 24780813 (Version 1)
Quarter: 2024Q4

REPORT INFORMATION
  Report Type: Spontaneous
  Country: US (occurrence: US)
  Receive Date: 20241227
  Receipt Date: 20241227
  Transmission Date: 20250114
  Serious: No
  Sender: MERCK
  Company Number: US-009507513-2412USA006898

PATIENT
  Age: 5 Decade
  Sex: Female

DRUGS (5)
  1. NOXAFIL [Interacting]
     Active Substance: POSACONAZOLE
     Indication: Bronchopulmonary aspergillosis
     Dosage: UNK
  2. ISAVUCONAZOLE [Interacting]
     Active Substance: ISAVUCONAZOLE
     Indication: Prophylaxis
  3. PACRITINIB [Interacting]
     Active Substance: PACRITINIB
     Indication: Acute myeloid leukaemia
     Dosage: 200 MILLIGRAM, BID
  4. PACRITINIB [Interacting]
     Active Substance: PACRITINIB
     Indication: Myelofibrosis
     Dosage: 100 MILLIGRAM, BID
  5. MICAFUNGIN [Concomitant]
     Active Substance: MICAFUNGIN SODIUM
     Indication: Bronchopulmonary aspergillosis

REACTIONS (1)
  - Drug interaction [Unknown]
